FAERS Safety Report 14850032 (Version 1)
Quarter: 2018Q2

REPORT INFORMATION
  Report Type: Spontaneous
  Country: US (occurrence: US)
  Receive Date: 20180504
  Receipt Date: 20180504
  Transmission Date: 20180711
  Serious: Yes (Hospitalization)
  Sender: FDA-Public Use
  Company Number: US-ACTELION-A-NJ2018-171527

PATIENT
  Age: 53 Year
  Sex: Male

DRUGS (12)
  1. RIBAVARIN [Concomitant]
     Active Substance: RIBAVIRIN
  2. VALCYTE [Concomitant]
     Active Substance: VALGANCICLOVIR HYDROCHLORIDE
  3. OPSUMIT [Suspect]
     Active Substance: MACITENTAN
     Indication: COR PULMONALE
     Dosage: 10 MG, UNK
     Route: 048
  4. CARVEDILOL. [Concomitant]
     Active Substance: CARVEDILOL
     Dosage: 3.125 MG, UNK
  5. DAKLINZA [Concomitant]
     Active Substance: DACLATASVIR
  6. FUROSEMIDE. [Concomitant]
     Active Substance: FUROSEMIDE
  7. LEVOFLOXACIN. [Concomitant]
     Active Substance: LEVOFLOXACIN
  8. OMEPRAZOLE. [Concomitant]
     Active Substance: OMEPRAZOLE
  9. MYCOPHENOLATE MOFETIL. [Concomitant]
     Active Substance: MYCOPHENOLATE MOFETIL
  10. TACROLIMUS. [Concomitant]
     Active Substance: TACROLIMUS
  11. METOPROLOL. [Concomitant]
     Active Substance: METOPROLOL
  12. SOVALDI [Concomitant]
     Active Substance: SOFOSBUVIR

REACTIONS (1)
  - Pneumonia staphylococcal [Unknown]
